FAERS Safety Report 6640783-3 (Version None)
Quarter: 2010Q1

REPORT INFORMATION
  Report Type: 
  Country: None (occurrence: None)
  Receive Date: 20100318
  Receipt Date: 20100309
  Transmission Date: 20100710
  Serious: Yes (Other)
  Sender: FDA-Public Use
  Company Number: GB-PFIZER INC-2010030112

PATIENT
  Age: 19 Year
  Sex: Female
  Weight: 79 kg

DRUGS (2)
  1. DEPO-PROVERA [Suspect]
     Indication: CONTRACEPTION
     Dosage: 150 MG, UNK
     Route: 030
     Dates: start: 20100108
  2. TETRALYSAL [Concomitant]
     Indication: ACNE
     Dosage: 300 MG, UNK
     Route: 048

REACTIONS (3)
  - DYSPNOEA [None]
  - MALAISE [None]
  - RASH [None]
